FAERS Safety Report 6209637-0 (Version None)
Quarter: 2009Q2

REPORT INFORMATION
  Report Type: 
  Country: None (occurrence: None)
  Receive Date: 20090527
  Receipt Date: 20090511
  Transmission Date: 20091009
  Serious: Yes (Hospitalization)
  Sender: FDA-Public Use
  Company Number: F03200900033

PATIENT
  Age: 67 Year
  Sex: Female

DRUGS (6)
  1. FLUDARABINE PHOSPHATE [Suspect]
     Indication: CHRONIC LYMPHOCYTIC LEUKAEMIA
     Dosage: DAY 1,2,3 Q28 FOR A DURATION OF 4 WEEKS AND 3 DAYS, 100 MG QD
     Route: 048
     Dates: start: 20090126, end: 20090303
  2. FLUDARABINE PHOSPHATE [Suspect]
     Indication: CHRONIC LYMPHOCYTIC LEUKAEMIA
     Dosage: DAY 1,2,3 Q28 FOR A DURATION OF 4 WEEKS AND 3 DAYS, 100 MG QD
     Route: 048
     Dates: start: 20081222, end: 20090303
  3. GABAPENTIN [Concomitant]
  4. PANTOPRAZOLE SODIUM [Concomitant]
  5. VALACYCLOVIR HCL [Concomitant]
  6. VALACYCLOVIR [Concomitant]

REACTIONS (5)
  - FEBRILE NEUTROPENIA [None]
  - HAEMOGLOBIN DECREASED [None]
  - PLATELET COUNT DECREASED [None]
  - PLEURAL EFFUSION [None]
  - WHITE BLOOD CELL COUNT DECREASED [None]
